FAERS Safety Report 4874908-7 (Version None)
Quarter: 2006Q1

REPORT INFORMATION
  Report Type: 
  Country: None (occurrence: None)
  Receive Date: 20060105
  Receipt Date: 20051228
  Transmission Date: 20060701
  Serious: Yes (Death, Hospitalization)
  Sender: FDA-Public Use
  Company Number: 2005RR-01409

PATIENT
  Sex: Female

DRUGS (7)
  1. METFORMIN HCL [Suspect]
     Indication: DIABETES MELLITUS NON-INSULIN-DEPENDENT
  2. ENALAPRIL MALEATE [Suspect]
  3. DIGOXIN [Suspect]
  4. FUROSEMIDE [Concomitant]
  5. HYDROXYZINE HYDROCHLORIDE [Concomitant]
  6. AMLODIPINE [Concomitant]
  7. WARFARIN SODIUM [Concomitant]

REACTIONS (8)
  - CARDIAC ARREST [None]
  - DEHYDRATION [None]
  - LACTIC ACIDOSIS [None]
  - MALAISE [None]
  - METABOLIC ACIDOSIS [None]
  - MYOCARDIAL INFARCTION [None]
  - PERITONEAL DIALYSIS [None]
  - REFUSAL OF TREATMENT BY PATIENT [None]
